FAERS Safety Report 4864218-6 (Version None)
Quarter: 2005Q4

REPORT INFORMATION
  Report Type: 
  Country: None (occurrence: None)
  Receive Date: 20051220
  Receipt Date: 20051220
  Transmission Date: 20060501
  Serious: No
  Sender: FDA-Public Use
  Company Number: None

PATIENT
  Age: 49 Year
  Sex: Female
  Weight: 61.2356 kg

DRUGS (4)
  1. RIBAVIRIN [Suspect]
     Indication: HEPATITIS C
     Dosage: ACCORDING TO MANUFACTURER  PO
     Route: 048
     Dates: start: 20000103, end: 20000303
  2. RIBAVIRIN [Suspect]
     Indication: HEPATITIS CHRONIC ACTIVE
     Dosage: ACCORDING TO MANUFACTURER  PO
     Route: 048
     Dates: start: 20000103, end: 20000303
  3. INTEFERON  SCHERING [Suspect]
     Indication: HEPATITIS C
     Dosage: ACCORDING TO MANUFACTURER  SUBDERMAL
     Route: 059
     Dates: start: 20000103, end: 20000303
  4. INTEFERON  SCHERING [Suspect]
     Indication: HEPATITIS CHRONIC ACTIVE
     Dosage: ACCORDING TO MANUFACTURER  SUBDERMAL
     Route: 059
     Dates: start: 20000103, end: 20000303

REACTIONS (11)
  - ABDOMINAL DISCOMFORT [None]
  - ALOPECIA [None]
  - FIBROMYALGIA [None]
  - HEADACHE [None]
  - IMPAIRED WORK ABILITY [None]
  - INSOMNIA [None]
  - MASS [None]
  - PAIN [None]
  - PRURITUS [None]
  - SKIN DISORDER [None]
  - VERTIGO [None]
